FAERS Safety Report 5640970-7 (Version None)
Quarter: 2008Q1

REPORT INFORMATION
  Report Type: 
  Country: None (occurrence: None)
  Receive Date: 20080227
  Receipt Date: 20080215
  Transmission Date: 20080703
  Serious: Yes (Hospitalization)
  Sender: FDA-Public Use
  Company Number: PL-ROCHE-508461

PATIENT
  Age: 53 Year
  Sex: Male
  Weight: 85.6 kg

DRUGS (3)
  1. PEG-INTERFERON ALFA 2A (RO 25-8310) [Suspect]
     Dosage: DOSE BLINDED FIRST 12 WEEKS.
     Route: 058
     Dates: start: 20070706
  2. RIBAVIRIN [Suspect]
     Dosage: DOSE BLINDED. (X) 5 TABLETS, (Y) 1 TABLET
     Route: 048
     Dates: start: 20070706
  3. PROCTO- GLYVENOL [Concomitant]

REACTIONS (1)
  - INTESTINAL OBSTRUCTION [None]
